FAERS Safety Report 18376332 (Version 1)
Quarter: 2020Q4

REPORT INFORMATION
  Report Type: Spontaneous
  Country: US (occurrence: US)
  Receive Date: 20201011
  Receipt Date: 20201011
  Transmission Date: 20210114
  Serious: Yes (Other)
  Sender: FDA-Public Use
  Company Number: None

PATIENT
  Age: 63 Year
  Sex: Female
  Weight: 60.75 kg

DRUGS (1)
  1. VISINE [Suspect]
     Active Substance: TETRAHYDROZOLINE HYDROCHLORIDE
     Indication: EYE PRURITUS
     Route: 047
     Dates: start: 20201010, end: 20201010

REACTIONS (3)
  - Eye swelling [None]
  - Drug ineffective [None]
  - Vision blurred [None]

NARRATIVE: CASE EVENT DATE: 20201010
